FAERS Safety Report 4423228-3 (Version None)
Quarter: 2004Q3

REPORT INFORMATION
  Report Type: 
  Country: None (occurrence: None)
  Receive Date: 20040805
  Receipt Date: 20040723
  Transmission Date: 20050211
  Serious: Yes (Other)
  Sender: FDA-Public Use
  Company Number: US-JNJFOC-20040706471

PATIENT
  Age: 54 Year
  Sex: Female

DRUGS (12)
  1. INFLIXIMAB (INFLIXIMAB, RECOMBINANT) LYOPHILIZED POWDER [Suspect]
     Indication: RHEUMATOID ARTHRITIS
     Dosage: 3-7 MG / KG
     Dates: start: 20010608, end: 20030108
  2. QUINACRINE (MEPACRINE HYDROCHLORIDE) [Concomitant]
  3. ARAVA [Concomitant]
  4. PROZAC [Concomitant]
  5. FOLIC ACID [Concomitant]
  6. ATENOLOL [Concomitant]
  7. LIPITOR [Concomitant]
  8. PREMARIN [Concomitant]
  9. DYAZIDE [Concomitant]
  10. SYNTHROID [Concomitant]
  11. BEXTRA [Concomitant]
  12. ASPIRIN [Concomitant]

REACTIONS (3)
  - DRUG INEFFECTIVE [None]
  - PLEURITIC PAIN [None]
  - SYSTEMIC LUPUS ERYTHEMATOSUS [None]
